FAERS Safety Report 6052130-9 (Version None)
Quarter: 2009Q1

REPORT INFORMATION
  Report Type: 
  Country: None (occurrence: None)
  Receive Date: 20090126
  Receipt Date: 20090119
  Transmission Date: 20090719
  Serious: Yes (Death)
  Sender: FDA-Public Use
  Company Number: US-B.I. PHARMACEUTICALS,INC./RIDGEFIELD-2009-DE-00535GD

PATIENT
  Age: 45 Year
  Sex: Male

DRUGS (6)
  1. CLONIDINE HCL [Suspect]
  2. AMLODIPINE [Suspect]
     Route: 048
  3. METOPROLOL [Suspect]
  4. METFORMIN HCL [Suspect]
  5. ROSIGLITAZONE [Suspect]
  6. SIMVASTATIN [Suspect]

REACTIONS (2)
  - COMPLETED SUICIDE [None]
  - DRUG ABUSE [None]
